FAERS Safety Report 10078329 (Version 3)
Quarter: 2014Q2

REPORT INFORMATION
  Report Type: Report from Study
  Country: US (occurrence: US)
  Receive Date: 20140415
  Receipt Date: 20140506
  Transmission Date: 20141212
  Serious: Yes (Other)
  Sender: FDA-Public Use
  Company Number: US-ROCHE-1356056

PATIENT
  Sex: Male

DRUGS (10)
  1. PEGASYS [Suspect]
     Indication: HEPATITIS C
     Route: 058
     Dates: start: 20130903
  2. RIBAVIRIN [Suspect]
     Indication: HEPATITIS C
     Dosage: TOOK 4 PILLS IN AM AND 3 PILLS IN PM
     Route: 048
     Dates: start: 20130903
  3. RIBAVIRIN [Suspect]
     Dosage: 1 IN AM AND 1 IN PM
     Route: 048
  4. INCIVEK [Suspect]
     Indication: HEPATITIS C
     Dosage: COMPLETED THERAPY
     Route: 011
     Dates: start: 20130903, end: 201311
  5. ASPIRIN [Concomitant]
     Route: 065
  6. LISINOPRIL [Concomitant]
     Indication: HYPERTENSION
     Route: 048
  7. TRAMADOL [Concomitant]
     Route: 048
  8. FLUOXETINE [Concomitant]
     Indication: DEPRESSION
     Route: 048
  9. WELLBUTRIN SR [Concomitant]
     Indication: DEPRESSION
     Route: 065
  10. ZOFRAN [Concomitant]
     Route: 048

REACTIONS (17)
  - Leukopenia [Unknown]
  - Treatment failure [Unknown]
  - Viral infection [Unknown]
  - Contusion [Unknown]
  - Umbilical hernia [Unknown]
  - Hypersensitivity [Unknown]
  - Wheezing [Unknown]
  - Oedema peripheral [Unknown]
  - Diarrhoea [Unknown]
  - Vision blurred [Unknown]
  - Nasal congestion [Unknown]
  - Cough [Unknown]
  - Nausea [Unknown]
  - Abdominal pain [Unknown]
  - Pruritus [Unknown]
  - Dry skin [Unknown]
  - Headache [Unknown]
